FAERS Safety Report 8575226-6 (Version None)
Quarter: 2012Q3

REPORT INFORMATION
  Report Type: 
  Country: None (occurrence: None)
  Receive Date: 20120807
  Receipt Date: 20120724
  Transmission Date: 20120928
  Serious: No
  Sender: FDA-Public Use
  Company Number: US-JNJFOC-20120712596

PATIENT
  Sex: Female
  Weight: 65.77 kg

DRUGS (5)
  1. AMBIEN [Concomitant]
     Indication: SLEEP DISORDER
     Route: 065
  2. ANXIETY MEDICATION [Concomitant]
     Indication: ANXIETY
     Route: 065
  3. ABILIFY [Concomitant]
     Indication: POST-TRAUMATIC STRESS DISORDER
     Route: 048
  4. DURAGESIC-100 [Suspect]
     Indication: FIBROMYALGIA
     Route: 062
     Dates: start: 20120701
  5. PAXIL [Concomitant]
     Indication: POST-TRAUMATIC STRESS DISORDER
     Route: 048

REACTIONS (2)
  - PRODUCT QUALITY ISSUE [None]
  - WRONG TECHNIQUE IN DRUG USAGE PROCESS [None]
